FAERS Safety Report 6485749-1 (Version None)
Quarter: 2009Q4

REPORT INFORMATION
  Report Type: 
  Country: None (occurrence: None)
  Receive Date: 20091204
  Receipt Date: 20091121
  Transmission Date: 20100525
  Serious: Yes (Hospitalization, Congenital Anomaly)
  Sender: FDA-Public Use
  Company Number: 8021928

PATIENT
  Age: 2 Month
  Sex: Male

DRUGS (3)
  1. KEPPRA [Suspect]
     Dosage: 2000 MG /D TRP
     Route: 064
     Dates: start: 20050801, end: 20060518
  2. TEGRETOL [Concomitant]
  3. CLONAZEPAM [Concomitant]

REACTIONS (8)
  - CAESAREAN SECTION [None]
  - HYDRONEPHROSIS [None]
  - HYPOPHAGIA [None]
  - KLEBSIELLA INFECTION [None]
  - MATERNAL DRUGS AFFECTING FOETUS [None]
  - PHIMOSIS [None]
  - PYREXIA [None]
  - URINARY TRACT INFECTION [None]
